FAERS Safety Report 5063513-8 (Version None)
Quarter: 2006Q3

REPORT INFORMATION
  Report Type: 
  Country: None (occurrence: None)
  Receive Date: 20060727
  Receipt Date: 20060630
  Transmission Date: 20061208
  Serious: Yes (Disabling)
  Sender: FDA-Public Use
  Company Number: DE-BRISTOL-MYERS SQUIBB COMPANY-13431671

PATIENT
  Sex: Female

DRUGS (2)
  1. AMPHO-MORONAL LOZENGE [Suspect]
  2. CHLORHEXIDINE [Suspect]

REACTIONS (1)
  - TOOTH DISCOLOURATION [None]
